FAERS Safety Report 11431930 (Version 2)
Quarter: 2015Q4

REPORT INFORMATION
  Report Type: Spontaneous
  Country: US (occurrence: US)
  Receive Date: 20150828
  Receipt Date: 20151016
  Transmission Date: 20160304
  Serious: No
  Sender: FDA-Public Use
  Company Number: US-PFIZER INC-2015270764

PATIENT
  Age: 77 Year
  Sex: Female
  Weight: 75 kg

DRUGS (1)
  1. LIPITOR [Suspect]
     Active Substance: ATORVASTATIN CALCIUM
     Dosage: UNK

REACTIONS (6)
  - Blood pressure abnormal [Unknown]
  - Anger [Unknown]
  - Cardiac disorder [Unknown]
  - Hypoacusis [Unknown]
  - Body height decreased [Unknown]
  - Renal disorder [Unknown]
